FAERS Safety Report 23805075 (Version 1)
Quarter: 2024Q2

REPORT INFORMATION
  Report Type: Report from Study
  Country: US (occurrence: US)
  Receive Date: 20240502
  Receipt Date: 20240502
  Transmission Date: 20240716
  Serious: Yes (Other)
  Sender: FDA-Public Use
  Company Number: US-ABBVIE-5735988

PATIENT
  Age: 42 Year
  Sex: Female

DRUGS (1)
  1. QULIPTA [Suspect]
     Active Substance: ATOGEPANT
     Indication: Brain neoplasm
     Dosage: FORM STRENGTH- 10 MILLIGRAM
     Route: 048
     Dates: start: 20230801

REACTIONS (5)
  - Brain tumour operation [Not Recovered/Not Resolved]
  - Migraine [Unknown]
  - Post procedural complication [Unknown]
  - Blindness unilateral [Unknown]
  - Product use in unapproved indication [Unknown]

NARRATIVE: CASE EVENT DATE: 20230801
